FAERS Safety Report 12684125 (Version 1)
Quarter: 2016Q3

REPORT INFORMATION
  Report Type: Spontaneous
  Country: US (occurrence: US)
  Receive Date: 20160825
  Receipt Date: 20160825
  Transmission Date: 20161109
  Serious: No
  Sender: FDA-Public Use
  Company Number: US-ALLERGAN-1653244US

PATIENT
  Age: 78 Year
  Sex: Male

DRUGS (1)
  1. ANDRODERM [Suspect]
     Active Substance: TESTOSTERONE
     Indication: PRODUCT USED FOR UNKNOWN INDICATION
     Dosage: 4 MG, UNK
     Route: 062
     Dates: start: 20160405

REACTIONS (2)
  - Skin irritation [Not Recovered/Not Resolved]
  - Application site rash [Not Recovered/Not Resolved]

NARRATIVE: CASE EVENT DATE: 20160405
